FAERS Safety Report 14571188 (Version 3)
Quarter: 2018Q3

REPORT INFORMATION
  Report Type: Report from Study
  Country: CA (occurrence: CA)
  Receive Date: 20180226
  Receipt Date: 20180927
  Transmission Date: 20181010
  Serious: Yes (Hospitalization, Other)
  Sender: FDA-Public Use
  Company Number: PHHY2017CA118684

PATIENT
  Sex: Male

DRUGS (5)
  1. EXJADE [Suspect]
     Active Substance: DEFERASIROX
     Indication: IRON OVERLOAD
     Dosage: UNK
     Route: 048
  2. DESFERAL [Suspect]
     Active Substance: DEFEROXAMINE MESYLATE
     Indication: IRON OVERLOAD
     Dosage: UNK
     Route: 058
     Dates: end: 2017
  3. JADENU [Suspect]
     Active Substance: DEFERASIROX
     Indication: IRON OVERLOAD
     Dosage: 1040 MG, QD
     Route: 048
  4. JADENU [Suspect]
     Active Substance: DEFERASIROX
     Dosage: 720 MG, QD
     Route: 048
  5. JADENU [Suspect]
     Active Substance: DEFERASIROX
     Dosage: 360 MG, QD
     Route: 048
     Dates: start: 20170809, end: 20180907

REACTIONS (9)
  - Dry skin [Unknown]
  - Serum ferritin increased [Unknown]
  - Nausea [Unknown]
  - Diarrhoea [Unknown]
  - Haemoglobin abnormal [Unknown]
  - Renal failure [Unknown]
  - Renal disorder [Unknown]
  - Asthenia [Unknown]
  - Gastrointestinal disorder [Unknown]
